FAERS Safety Report 24058577 (Version 3)
Quarter: 2024Q3

REPORT INFORMATION
  Report Type: Spontaneous
  Country: US (occurrence: US)
  Receive Date: 20240708
  Receipt Date: 20240830
  Transmission Date: 20241016
  Serious: Yes (Other)
  Sender: TEVA
  Company Number: US-TEVA-VS-3216950

PATIENT
  Age: 63 Year

DRUGS (1)
  1. DIAZEPAM [Suspect]
     Active Substance: DIAZEPAM
     Indication: Product used for unknown indication
     Route: 065

REACTIONS (8)
  - Chronic obstructive pulmonary disease [Not Recovered/Not Resolved]
  - Mental disorder [Not Recovered/Not Resolved]
  - Dyspnoea [Unknown]
  - Weight increased [Unknown]
  - Hypertension [Not Recovered/Not Resolved]
  - Gastrointestinal motility disorder [Unknown]
  - Depression [Unknown]
  - Fatigue [Unknown]
